FAERS Safety Report 12986932 (Version 1)
Quarter: 2016Q4

REPORT INFORMATION
  Report Type: Spontaneous
  Country: US (occurrence: US)
  Receive Date: 20161130
  Receipt Date: 20161130
  Transmission Date: 20170207
  Serious: No
  Sender: FDA-Public Use
  Company Number: US-PFIZER INC-2016544101

PATIENT
  Age: 66 Year
  Sex: Female

DRUGS (1)
  1. KETAMINE HCL [Suspect]
     Active Substance: KETAMINE HYDROCHLORIDE

REACTIONS (4)
  - Drug hypersensitivity [Unknown]
  - Hallucination [Unknown]
  - Heart rate decreased [Unknown]
  - Blood pressure decreased [Unknown]
